FAERS Safety Report 9005921 (Version 1)
Quarter: 2013Q1

REPORT INFORMATION
  Report Type: Spontaneous
  Country: US (occurrence: US)
  Receive Date: 20130109
  Receipt Date: 20130109
  Transmission Date: 20140127
  Serious: No
  Sender: FDA-Public Use
  Company Number: US-BAYER-2013-002925

PATIENT
  Sex: Male
  Weight: 166 kg

DRUGS (2)
  1. ALEVE CAPLET/TABLET,MIDOL EXTENDED RELIEF CAPLET [Suspect]
     Dosage: 3 DF, UNK
     Route: 048
  2. OXYCODONE [Concomitant]
     Indication: MYALGIA

REACTIONS (2)
  - Inappropriate schedule of drug administration [None]
  - Somnolence [None]
